FAERS Safety Report 21883006 (Version 2)
Quarter: 2023Q1

REPORT INFORMATION
  Report Type: Spontaneous
  Country: DE (occurrence: DE)
  Receive Date: 20230119
  Receipt Date: 20230207
  Transmission Date: 20230418
  Serious: Yes (Other)
  Sender: FDA-Public Use
  Company Number: DE-BRISTOL-MYERS SQUIBB COMPANY-2022-132510

PATIENT
  Age: 71 Year
  Weight: 55 kg

DRUGS (3)
  1. NIVOLUMAB [Suspect]
     Active Substance: NIVOLUMAB
     Indication: Oropharyngeal squamous cell carcinoma
     Dosage: FREQ : FIRST EVERY 2 WEEKS, THEN SWITCHED TO 4-WEEKLY
     Route: 042
     Dates: start: 20180813, end: 20210607
  2. NIVOLUMAB [Suspect]
     Active Substance: NIVOLUMAB
     Dosage: FREQ : FIRST EVERY 2 WEEKS, THEN SWITCHED TO 4-WEEKLY
     Route: 042
     Dates: start: 20180813, end: 20210607
  3. IBUPROFEN [Concomitant]
     Active Substance: IBUPROFEN
     Indication: Product used for unknown indication
     Dosage: 1-0-1

REACTIONS (3)
  - Upper respiratory tract infection [Recovered/Resolved]
  - Off label use [Unknown]
  - Aspiration [Unknown]

NARRATIVE: CASE EVENT DATE: 20210322
